FAERS Safety Report 8772087 (Version 2)
Quarter: 2012Q4

REPORT INFORMATION
  Report Type: 
  Country: JP (occurrence: JP)
  Receive Date: 20120906
  Receipt Date: 20120919
  Transmission Date: 20130627
  Serious: Yes (Hospitalization)
  Sender: FDA-Public Use
  Company Number: JP-JNJFOC-20120902273

PATIENT
  Age: 64 Year
  Sex: Male
  Weight: 58 kg

DRUGS (10)
  1. XARELTO [Suspect]
     Indication: PRODUCT USED FOR UNKNOWN INDICATION
     Route: 048
     Dates: start: 20120601, end: 20120609
  2. WARFARIN [Suspect]
     Indication: PRODUCT USED FOR UNKNOWN INDICATION
     Route: 048
     Dates: start: 20120504, end: 20120531
  3. PRONON [Concomitant]
     Indication: BRADYCARDIA
     Dates: start: 20120524, end: 20120608
  4. MAINTATE [Concomitant]
     Indication: BLOOD PRESSURE DECREASED
     Dates: start: 20120602, end: 20120608
  5. GASTROM [Concomitant]
     Route: 048
     Dates: start: 20060815
  6. SELBEX [Concomitant]
     Route: 048
     Dates: start: 20060815
  7. TOUGHMAC E [Concomitant]
     Route: 048
     Dates: start: 20060815
  8. EXCELASE [Concomitant]
     Route: 048
     Dates: start: 20120518
  9. VASOLAN [Concomitant]
     Indication: BRADYCARDIA
     Route: 048
     Dates: start: 20120517
  10. EDARAVONE [Concomitant]
     Route: 048
     Dates: start: 20120504, end: 20120514

REACTIONS (1)
  - Bone marrow failure [Recovered/Resolved with Sequelae]
